FAERS Safety Report 7703118-0 (Version None)
Quarter: 2011Q3

REPORT INFORMATION
  Report Type: 
  Country: None (occurrence: None)
  Receive Date: 20110817
  Receipt Date: 20110808
  Transmission Date: 20111222
  Serious: Yes (Other)
  Sender: FDA-Public Use
  Company Number: TRP_07814_2011

PATIENT
  Sex: Female
  Weight: 56.6996 kg

DRUGS (4)
  1. RIBASPHERE [Suspect]
     Indication: HEPATITIS C
     Dosage: 400 MG BID ORAL , (400 MG, DAILY ORAL)
     Route: 048
     Dates: start: 20100725
  2. LEVOXYL [Concomitant]
  3. PEG-INTRON [Suspect]
     Indication: HEPATITIS C
     Dosage: 80 ?G , SUBCUTANEOUS
     Route: 058
     Dates: start: 20100725
  4. LEXAPRO [Concomitant]

REACTIONS (3)
  - IMPAIRED HEALING [None]
  - TOOTHACHE [None]
  - TRANSPLANT FAILURE [None]
